FAERS Safety Report 6821837-5 (Version None)
Quarter: 2010Q3

REPORT INFORMATION
  Report Type: 
  Country: None (occurrence: None)
  Receive Date: 20100708
  Receipt Date: 20100628
  Transmission Date: 20110219
  Serious: Yes (Hospitalization)
  Sender: FDA-Public Use
  Company Number: US-BIOGENIDEC-2010BI021455

PATIENT
  Age: 55 Year
  Sex: Female

DRUGS (5)
  1. AVONEX [Suspect]
     Indication: MULTIPLE SCLEROSIS
     Route: 030
     Dates: start: 20000101, end: 20030101
  2. AVONEX [Suspect]
     Route: 030
     Dates: start: 20030101, end: 20080901
  3. AVONEX [Suspect]
     Route: 030
     Dates: start: 20090101, end: 20100501
  4. AVONEX [Suspect]
     Route: 030
     Dates: start: 20100601
  5. AVONEX [Suspect]
     Route: 030
     Dates: start: 20080901, end: 20090101

REACTIONS (8)
  - BREAST CANCER STAGE III [None]
  - FATIGUE [None]
  - INFLUENZA LIKE ILLNESS [None]
  - MULTIPLE SCLEROSIS RELAPSE [None]
  - PYREXIA [None]
  - RESPIRATORY TRACT INFECTION [None]
  - URINARY TRACT INFECTION [None]
  - WHITE BLOOD CELL COUNT DECREASED [None]
